FAERS Safety Report 25683685 (Version 1)
Quarter: 2025Q3

REPORT INFORMATION
  Report Type: Spontaneous
  Country: US (occurrence: US)
  Receive Date: 20250814
  Receipt Date: 20250814
  Transmission Date: 20251021
  Serious: No
  Sender: SANOFI AVENTIS
  Company Number: US-SA-2025SA238753

PATIENT
  Sex: Female

DRUGS (16)
  1. DUPIXENT [Suspect]
     Active Substance: DUPILUMAB
     Indication: Asthma
     Dosage: 300 MG, QOW
     Route: 058
  2. ALBUTEROL SULFATE [Concomitant]
     Active Substance: ALBUTEROL SULFATE
  3. CALCIUM [Concomitant]
     Active Substance: CALCIUM
  4. MULTIVITAMIN [ASCORBIC ACID;CALCIUM PANTOTHENATE;CYANOCOBALAMIN;ERGOCA [Concomitant]
  5. POTASSIUM GLUCONATE [Concomitant]
     Active Substance: POTASSIUM GLUCONATE
  6. VITAMIN C [Concomitant]
     Active Substance: ASCORBIC ACID
  7. ALBUTEROL SULFATE [Concomitant]
     Active Substance: ALBUTEROL SULFATE
  8. AMLODIPINE BESYLATE [Concomitant]
     Active Substance: AMLODIPINE BESYLATE
  9. ATORVASTATIN [Concomitant]
     Active Substance: ATORVASTATIN
  10. BIOTIN [Concomitant]
     Active Substance: BIOTIN
  11. BREZTRI AEROSPHERE [BUDESONIDE;FORMOTEROL FUMARATE;GLYCOPYRRONIUM BROM [Concomitant]
  12. ELIQUIS [Concomitant]
     Active Substance: APIXABAN
  13. PANTOPRAZOLE [Concomitant]
     Active Substance: PANTOPRAZOLE
  14. SIMVASTATIN [Concomitant]
     Active Substance: SIMVASTATIN
  15. VENLAFAXINE [Concomitant]
     Active Substance: VENLAFAXINE HYDROCHLORIDE
  16. VITAMIN D3 [Concomitant]
     Active Substance: CHOLECALCIFEROL

REACTIONS (3)
  - Burning sensation [Recovered/Resolved]
  - Pruritus [Recovered/Resolved]
  - Rash [Recovered/Resolved]
